FAERS Safety Report 12575450 (Version 2)
Quarter: 2016Q3

REPORT INFORMATION
  Report Type: Spontaneous
  Country: CA (occurrence: CA)
  Receive Date: 20160720
  Receipt Date: 20160906
  Transmission Date: 20161109
  Serious: Yes (Death, Disabling, Other)
  Sender: FDA-Public Use
  Company Number: CA-BAYER-2016-115796

PATIENT
  Age: 56 Year
  Sex: Female

DRUGS (3)
  1. AZACITIDINE. [Concomitant]
     Active Substance: AZACITIDINE
     Dosage: UNK
     Dates: start: 20160621
  2. NEXAVAR [Suspect]
     Active Substance: SORAFENIB
     Indication: ACUTE MYELOID LEUKAEMIA RECURRENT
     Dosage: UNK
     Dates: start: 201607
  3. NEXAVAR [Suspect]
     Active Substance: SORAFENIB
     Indication: ACUTE MYELOID LEUKAEMIA RECURRENT
     Dosage: UNK
     Dates: start: 20160621, end: 201607

REACTIONS (11)
  - Clostridium difficile colitis [None]
  - Pyrexia [None]
  - Asthenia [None]
  - Off label use [None]
  - Cytopenia [None]
  - Bedridden [None]
  - Asthenia [None]
  - Diverticular perforation [None]
  - Death [Fatal]
  - Bacteroides test positive [None]
  - Blast cells present [None]

NARRATIVE: CASE EVENT DATE: 2016
